FAERS Safety Report 7418792-6 (Version None)
Quarter: 2011Q2

REPORT INFORMATION
  Report Type: 
  Country: None (occurrence: None)
  Receive Date: 20110415
  Receipt Date: 20110331
  Transmission Date: 20111010
  Serious: Yes (Other)
  Sender: FDA-Public Use
  Company Number: US-ELI_LILLY_AND_COMPANY-US201102002215

PATIENT
  Sex: Female

DRUGS (8)
  1. LYRICA [Concomitant]
     Dosage: 5 MG, BID
  2. CYMBALTA [Suspect]
     Indication: NEURALGIA
     Dosage: 30 MG, 2/D
     Dates: start: 20101220
  3. MORPHINE SULFATE [Concomitant]
     Dosage: UNK, QD PRN
  4. CYMBALTA [Suspect]
     Dosage: 20 MG, UNKNOWN
     Dates: end: 20110124
  5. CYMBALTA [Suspect]
     Dosage: 60 MG, UNKNOWN
  6. ZANAFLEX [Concomitant]
     Dosage: 2 MG, EACH EVENING
  7. FIBER [Concomitant]
  8. VITAMIN D [Concomitant]

REACTIONS (1)
  - INTESTINAL ISCHAEMIA [None]
